FAERS Safety Report 9115086 (Version 2)
Quarter: 2013Q3

REPORT INFORMATION
  Report Type: Spontaneous
  Country: US (occurrence: US)
  Receive Date: 20130225
  Receipt Date: 20130822
  Transmission Date: 20140515
  Serious: Yes (Death)
  Sender: FDA-Public Use
  Company Number: US-COVIDIEN/TYCO HEALTHCARE/MALLINCKRODT-T201204579

PATIENT
  Age: 39 Year
  Sex: Male

DRUGS (1)
  1. GABLOFEN [Suspect]
     Dosage: UNK
     Route: 037
     Dates: start: 20121004

REACTIONS (4)
  - Abdominal distension [Unknown]
  - Dysphagia [Recovered/Resolved]
  - Influenza like illness [Unknown]
  - Flatulence [Unknown]
